FAERS Safety Report 24930100 (Version 1)
Quarter: 2025Q1

REPORT INFORMATION
  Report Type: Report from Study
  Country: FR (occurrence: FR)
  Receive Date: 20250205
  Receipt Date: 20250205
  Transmission Date: 20250409
  Serious: Yes (Other)
  Sender: BIOGEN
  Company Number: FR-BIOGEN-2025BI01299028

PATIENT
  Sex: Male
  Weight: 82 kg

DRUGS (1)
  1. OMAVELOXOLONE [Suspect]
     Active Substance: OMAVELOXOLONE
     Indication: Friedreich^s ataxia
     Route: 050
     Dates: start: 20240723

REACTIONS (1)
  - Hepatitis [Unknown]
